FAERS Safety Report 22025646 (Version 1)
Quarter: 2023Q1

REPORT INFORMATION
  Report Type: Spontaneous
  Country: US (occurrence: None)
  Receive Date: 20230223
  Receipt Date: 20230223
  Transmission Date: 20230418
  Serious: No
  Sender: FDA-Public Use
  Company Number: US-ROCHE-3143065

PATIENT
  Sex: Male

DRUGS (37)
  1. XOLAIR [Suspect]
     Active Substance: OMALIZUMAB
     Indication: Asthma
     Dosage: INJECT 300 MG (2 SYRINGES) SUBCUTANEOUSLY EVERY 28 DAYS,
     Route: 058
     Dates: start: 20220317
  2. XOLAIR [Suspect]
     Active Substance: OMALIZUMAB
  3. XOLAIR [Suspect]
     Active Substance: OMALIZUMAB
  4. BENADRYL [Concomitant]
     Active Substance: DIPHENHYDRAMINE HYDROCHLORIDE
     Dosage: ONE CAPSULE BY MOUTH, DISPENSED 24 CAPSULES
     Route: 048
     Dates: start: 20220714
  5. ALBUTEROL SULFATE [Concomitant]
     Active Substance: ALBUTEROL SULFATE
     Dosage: 90 MCG, 2 PUFFS INHALATION BY MOUTH
     Dates: start: 20210409
  6. ALBUTEROL SULFATE [Concomitant]
     Active Substance: ALBUTEROL SULFATE
     Dosage: STRENGTH: 2.5 MG /3 ML, 3 ML INHALATION BY MOUTH
     Dates: start: 20210612
  7. ZYLOPRIM [Concomitant]
     Active Substance: ALLOPURINOL
     Route: 048
     Dates: start: 20220221
  8. ELAVIL [Concomitant]
     Active Substance: AMITRIPTYLINE HYDROCHLORIDE
     Dosage: 1 TABLET EVERYDAY AT BEDTIME
     Route: 048
     Dates: start: 20220111
  9. ASPIRIN [Concomitant]
     Active Substance: ASPIRIN
     Dosage: ORAL CHEW,
     Route: 048
  10. LIPITOR [Concomitant]
     Active Substance: ATORVASTATIN CALCIUM
     Dosage: REFILLS: 3
     Route: 048
     Dates: start: 20220606
  11. BETAMETHASONE DIPROPIONATE [Concomitant]
     Active Substance: BETAMETHASONE DIPROPIONATE
     Dosage: REFILLS: 3
     Route: 061
     Dates: start: 20200608
  12. BUMEX [Concomitant]
     Active Substance: BUMETANIDE
     Route: 048
  13. COREG [Concomitant]
     Active Substance: CARVEDILOL
     Dosage: REFILLS: 3
     Route: 048
     Dates: start: 20220606
  14. ZYRTEC [Concomitant]
     Active Substance: CETIRIZINE HYDROCHLORIDE
     Dosage: REFILLS: 4
     Route: 048
     Dates: start: 20211117
  15. CHOLECALCIFEROL [Concomitant]
     Active Substance: CHOLECALCIFEROL
     Dosage: 1250 MCG (50,000 UNITS)
     Route: 048
  16. DEXLANSOPRAZOLE [Concomitant]
     Active Substance: DEXLANSOPRAZOLE
     Route: 048
  17. VALIUM [Concomitant]
     Active Substance: DIAZEPAM
     Dosage: ONE ORAL 30 MIN PRIOR TO MRI
     Route: 048
     Dates: start: 20220211
  18. EPIPEN [Concomitant]
     Active Substance: EPINEPHRINE
     Dosage: STRENGTH: 0.3 MG/ 0.3 ML
     Route: 030
     Dates: start: 20220414
  19. PEPCID [Concomitant]
     Active Substance: FAMOTIDINE
     Route: 048
  20. ADVAIR HFA [Concomitant]
     Active Substance: FLUTICASONE PROPIONATE\SALMETEROL XINAFOATE
     Dosage: 230 TO 21 MCG/ACTUATION, 2 PUFFS INHALATION BY MOUTH
     Dates: start: 20220413
  21. FLONASE [Concomitant]
     Active Substance: FLUTICASONE PROPIONATE
     Dosage: 50 MCG PER ACTUATION, 1 SPRAY BY EACH NOSTRILS
     Route: 045
     Dates: start: 20200831
  22. APRESOLINE HYDROCHLORIDE [Concomitant]
     Active Substance: HYDRALAZINE HYDROCHLORIDE
     Dosage: REFILLS: 3
     Route: 048
     Dates: start: 20220606
  23. HYDROCODONE [Concomitant]
     Active Substance: HYDROCODONE
     Dosage: 5 TO 325 MG ORAL TABLET, ONE TABLET BY MOUTH EVERY 4 HOURS
     Route: 048
     Dates: start: 20210824
  24. ISOSORBIDE DINITRATE [Concomitant]
     Active Substance: ISOSORBIDE DINITRATE
     Route: 048
  25. ISOSORBIDE MONONITRATE [Concomitant]
     Active Substance: ISOSORBIDE MONONITRATE
     Route: 048
     Dates: start: 20220606
  26. LINZESS [Concomitant]
     Active Substance: LINACLOTIDE
     Route: 048
  27. MAGNESIUM OXIDE [Concomitant]
     Active Substance: MAGNESIUM OXIDE
     Dosage: 400 MG (241.3 MG MAGNESIUM)
     Route: 048
     Dates: start: 20220606
  28. GLUCOPHAGE [Concomitant]
     Active Substance: METFORMIN HYDROCHLORIDE
     Route: 048
  29. SINGULAIR [Concomitant]
     Active Substance: MONTELUKAST SODIUM
     Dosage: EVERY NIGHT AT BEDTIME
     Route: 048
     Dates: start: 20200701
  30. NITROSTAT [Concomitant]
     Active Substance: NITROGLYCERIN
     Route: 060
     Dates: start: 20220125
  31. LOVAZA [Concomitant]
     Active Substance: OMEGA-3-ACID ETHYL ESTERS
     Route: 048
     Dates: start: 20170911
  32. MIRALAX [Concomitant]
     Active Substance: POLYETHYLENE GLYCOL 3350
     Dosage: DISSOLVE EACH DOSE IN AT LEAST 8 OUNCES OF WATER, JUICE, SODA OR COFFEE FOR CONSTIPATION
     Route: 048
     Dates: start: 20210408
  33. LYRICA [Concomitant]
     Active Substance: PREGABALIN
     Route: 048
     Dates: start: 20200429
  34. MOTEGRITY [Concomitant]
     Active Substance: PRUCALOPRIDE SUCCINATE
     Route: 048
     Dates: start: 20220503
  35. SPIRONOLACTONE [Concomitant]
     Active Substance: SPIRONOLACTONE
     Route: 048
  36. FLOMAX [Concomitant]
     Active Substance: TAMSULOSIN HYDROCHLORIDE
     Route: 048
  37. SPIRIVA RESPIMAT [Concomitant]
     Active Substance: TIOTROPIUM BROMIDE
     Dosage: 2.5 MCG PER ACTUATION, 2 PUFFS INHALATION BY MOUTH
     Dates: start: 20220628

REACTIONS (5)
  - Hyperhidrosis [Recovered/Resolved]
  - Pharyngeal swelling [Recovered/Resolved]
  - Unevaluable event [Recovered/Resolved]
  - Urticaria [Unknown]
  - Swollen tongue [Unknown]
